FAERS Safety Report 5008429-8 (Version None)
Quarter: 2006Q1

REPORT INFORMATION
  Report Type: 
  Country: None (occurrence: None)
  Receive Date: 20060331
  Receipt Date: 20060127
  Transmission Date: 20060701
  Serious: Yes (Hospitalization)
  Sender: FDA-Public Use
  Company Number: US166066

PATIENT
  Age: 72 Year
  Sex: Male

DRUGS (5)
  1. NEULASTA [Suspect]
     Indication: CHEMOTHERAPY
     Dosage: 6 MG, 1 IN 1 DAYS, SC
     Route: 058
     Dates: start: 20060111, end: 20060111
  2. ALIMTA [Concomitant]
  3. CARBOPLATIN [Concomitant]
  4. HYDROMORPHONE HYDROCHLORIDE [Concomitant]
  5. NEULASTA [Suspect]

REACTIONS (1)
  - FEBRILE NEUTROPENIA [None]
